FAERS Safety Report 6598657-2 (Version None)
Quarter: 2010Q1

REPORT INFORMATION
  Report Type: 
  Country: None (occurrence: None)
  Receive Date: 20100224
  Receipt Date: 20100216
  Transmission Date: 20100710
  Serious: Yes (Other)
  Sender: FDA-Public Use
  Company Number: US-JNJFOC-20100207735

PATIENT
  Sex: Female
  Weight: 72.58 kg

DRUGS (1)
  1. LEVAQUIN [Suspect]
     Indication: DRUG USE FOR UNKNOWN INDICATION
     Route: 048

REACTIONS (9)
  - DIZZINESS [None]
  - DYSKINESIA [None]
  - GLOSSODYNIA [None]
  - HEADACHE [None]
  - SENSATION OF FOREIGN BODY [None]
  - SWOLLEN TONGUE [None]
  - SYNCOPE [None]
  - TACHYCARDIA [None]
  - TONGUE DISORDER [None]
